FAERS Safety Report 5172526-7 (Version None)
Quarter: 2006Q4

REPORT INFORMATION
  Report Type: 
  Country: None (occurrence: None)
  Receive Date: 20061213
  Receipt Date: 20060914
  Transmission Date: 20070319
  Serious: No
  Sender: FDA-Public Use
  Company Number: US-AMGEN-KDL193653

PATIENT
  Sex: Male
  Weight: 96.7 kg

DRUGS (11)
  1. ENBREL [Suspect]
     Indication: RHEUMATOID ARTHRITIS
     Route: 058
     Dates: start: 20050118, end: 20060712
  2. DILANTIN [Concomitant]
  3. PAXIL [Concomitant]
  4. UNSPECIFIED MEDICATION [Concomitant]
  5. FOSAMAX [Concomitant]
  6. HUMIRA [Concomitant]
  7. IMURAN [Concomitant]
  8. CALTRATE [Concomitant]
  9. OXYCODONE HCL [Concomitant]
  10. CYMBALTA [Concomitant]
  11. PLAQUENIL [Concomitant]

REACTIONS (1)
  - LYMPHADENOPATHY [None]
